FAERS Safety Report 9931782 (Version 2)
Quarter: 2014Q1

REPORT INFORMATION
  Report Type: Spontaneous
  Country: US (occurrence: None)
  Receive Date: 20140226
  Receipt Date: 20140311
  Transmission Date: 20141002
  Serious: Yes (Other)
  Sender: FDA-Public Use
  Company Number: A1062006A

PATIENT
  Age: 66 Year
  Sex: Female

DRUGS (1)
  1. SODIUM FLUORIDE TOOTHPASTE (SODIUM FLUORIDE) [Suspect]
     Dosage: UNK/ UNK/ DENTAL
     Route: 004

REACTIONS (4)
  - Coeliac disease [None]
  - Condition aggravated [None]
  - Product taste abnormal [None]
  - Product formulation issue [None]
